FAERS Safety Report 6488687-3 (Version None)
Quarter: 2009Q4

REPORT INFORMATION
  Report Type: 
  Country: None (occurrence: None)
  Receive Date: 20091210
  Receipt Date: 20091202
  Transmission Date: 20100525
  Serious: Yes (Death, Other)
  Sender: FDA-Public Use
  Company Number: GB-PFIZER INC-2009304772

PATIENT
  Age: 44 Year
  Sex: Male

DRUGS (4)
  1. METHYLPREDNISOLONE AND METHYLPREDNISOLONE ACETATE AND METHYLPREDNISOLO [Suspect]
     Indication: CHRONIC LYMPHOCYTIC LEUKAEMIA RECURRENT
     Dosage: 1000 MG/M2, UNK
     Route: 042
  2. CAMPATH [Suspect]
     Indication: CHRONIC LYMPHOCYTIC LEUKAEMIA RECURRENT
     Dosage: 3 MG, UNK
     Route: 058
  3. CAMPATH [Suspect]
     Dosage: 10 MG, UNK
     Route: 058
  4. CAMPATH [Suspect]
     Dosage: 30 MG, UNK
     Route: 058

REACTIONS (7)
  - CHRONIC LYMPHOCYTIC LEUKAEMIA [None]
  - HEPATIC CIRRHOSIS [None]
  - HEPATIC FIBROSIS [None]
  - HEPATIC FUNCTION ABNORMAL [None]
  - HEPATITIS ACUTE [None]
  - HEPATITIS C [None]
  - NEUTROPENIC SEPSIS [None]
